FAERS Safety Report 22613843 (Version 1)
Quarter: 2023Q2

REPORT INFORMATION
  Report Type: Spontaneous
  Country: US (occurrence: US)
  Receive Date: 20230619
  Receipt Date: 20230619
  Transmission Date: 20230722
  Serious: Yes (Other)
  Sender: FDA-Public Use
  Company Number: US-drreddys-SPO/USA/23/0166986

PATIENT
  Age: 1 Decade
  Sex: Female

DRUGS (8)
  1. DOXORUBICIN HYDROCHLORIDE [Suspect]
     Active Substance: DOXORUBICIN HYDROCHLORIDE
     Indication: Primitive neuroectodermal tumour
     Dosage: 30 MG/M2/DAY OVER THE COURSE OF 48 H, ON DAYS 2 AND 3 OF WEEKS 1, 4, AND13
     Route: 003
  2. DACTINOMYCIN [Suspect]
     Active Substance: DACTINOMYCIN
     Indication: Primitive neuroectodermal tumour
     Dosage: ON DAYS 1, 2, 3, 4, AND 5 OF WEEK16
     Route: 042
  3. CYCLOPHOSPHAMIDE [Suspect]
     Active Substance: CYCLOPHOSPHAMIDE
     Indication: Primitive neuroectodermal tumour
     Dosage: 300 MG/M2/DAY OVER THE COURSE OF 72 H, ON DAYS 2, 3, AND 4 OF WEEKS 1, 13, AND 16
     Route: 042
  4. CYCLOPHOSPHAMIDE [Suspect]
     Active Substance: CYCLOPHOSPHAMIDE
     Dosage: 600 MG/M2 WAS ADMINISTERED ON DAY 2 OF WEEKS 7 AND 10
     Route: 042
  5. CISPLATIN [Suspect]
     Active Substance: CISPLATIN
     Indication: Primitive neuroectodermal tumour
     Dosage: 90 MG/M2 ON DAY 1 OF WEEKS 1, 4, 7, AND 10
     Route: 042
  6. TOPOTECAN [Suspect]
     Active Substance: TOPOTECAN HYDROCHLORIDE
     Indication: Primitive neuroectodermal tumour
     Dosage: ON DAY 1 OF WEEKS 1, 2, 4, 7,AND 13
     Route: 029
  7. ETOPOSIDE [Suspect]
     Active Substance: ETOPOSIDE
     Indication: Primitive neuroectodermal tumour
     Dosage: 100 MG/M2 ON DAYS 1, 2, AND 3 OF WEEKS 4, 7, AND 10.
     Route: 042
  8. VINCRISTINE [Suspect]
     Active Substance: VINCRISTINE
     Indication: Primitive neuroectodermal tumour
     Dosage: 2 MG/M2 DAY 1 OF WEEKS 1?13 AND WEEK 16
     Route: 042

REACTIONS (2)
  - Venoocclusive liver disease [Unknown]
  - Product use in unapproved indication [Unknown]
